FAERS Safety Report 5496490-6 (Version None)
Quarter: 2007Q4

REPORT INFORMATION
  Report Type: 
  Country: None (occurrence: None)
  Receive Date: 20071025
  Receipt Date: 20070626
  Transmission Date: 20080405
  Serious: No
  Sender: FDA-Public Use
  Company Number: A0654394A

PATIENT
  Age: 17 Year
  Sex: Male
  Weight: 62.5 kg

DRUGS (1)
  1. ADVAIR DISKUS 100/50 [Suspect]
     Indication: ASTHMA
     Route: 055
     Dates: start: 20020101, end: 20050518

REACTIONS (1)
  - GROWTH RETARDATION [None]
